FAERS Safety Report 7480960-5 (Version None)
Quarter: 2011Q2

REPORT INFORMATION
  Report Type: 
  Country: None (occurrence: None)
  Receive Date: 20110506
  Receipt Date: 20110429
  Transmission Date: 20111010
  Serious: Yes (Death, Hospitalization)
  Sender: FDA-Public Use
  Company Number: 2011SP018098

PATIENT
  Age: 73 Year
  Sex: Male
  Weight: 80 kg

DRUGS (25)
  1. RADIATION THERAPY [Suspect]
     Indication: OLIGODENDROGLIOMA
     Dates: start: 20110309
  2. OMEPRAZOLE [Concomitant]
  3. ZOFRAN [Concomitant]
  4. HUMULIN R [Concomitant]
  5. NITROGYLCERINE [Concomitant]
  6. CANDESARTAN CILEXETIL [Concomitant]
  7. CARVEDILOL [Concomitant]
  8. AMARYL [Concomitant]
  9. TRENTAL [Concomitant]
  10. COREG [Concomitant]
  11. VITAMIN E [Concomitant]
  12. METFORMIN HCL [Concomitant]
  13. WELLBUTRIN [Concomitant]
  14. ASPIRIN [Concomitant]
  15. SENNA-MINT WAF [Concomitant]
  16. FLAGYL [Concomitant]
  17. CATAPRES [Concomitant]
  18. LIPITOR [Concomitant]
  19. TEMODAR [Suspect]
     Indication: OLIGODENDROGLIOMA
     Dates: start: 20110112
  20. TEMODAR [Suspect]
     Indication: OLIGODENDROGLIOMA
     Dates: start: 20110309, end: 20110313
  21. DIGOXIN [Concomitant]
  22. BENICAR HCT [Concomitant]
  23. COMPAZINE [Concomitant]
  24. TEMODAR [Concomitant]
  25. LANTUS [Concomitant]

REACTIONS (31)
  - LARGE INTESTINAL HAEMORRHAGE [None]
  - OLIGODENDROGLIOMA [None]
  - SCAR [None]
  - ATRIAL FIBRILLATION [None]
  - BLOOD GLUCOSE INCREASED [None]
  - ACUTE MYOCARDIAL INFARCTION [None]
  - CHOLECYSTITIS ACUTE [None]
  - ACTIVITIES OF DAILY LIVING IMPAIRED [None]
  - PERIPHERAL COLDNESS [None]
  - DISORIENTATION [None]
  - SKIN HYPERPIGMENTATION [None]
  - PAIN [None]
  - CHOLELITHIASIS [None]
  - GALLBLADDER DISORDER [None]
  - HAEMOGLOBIN DECREASED [None]
  - AGITATION [None]
  - SPIDER VEIN [None]
  - MENTAL STATUS CHANGES [None]
  - CONVULSION [None]
  - STARING [None]
  - HYPOREFLEXIA [None]
  - INCONTINENCE [None]
  - CONFUSIONAL STATE [None]
  - MOBILITY DECREASED [None]
  - NEOPLASM PROGRESSION [None]
  - SKIN LESION [None]
  - PERIPHERAL PULSE DECREASED [None]
  - WHEELCHAIR USER [None]
  - RENAL INFARCT [None]
  - DIARRHOEA [None]
  - PERIANAL ERYTHEMA [None]
